FAERS Safety Report 6747034-X (Version None)
Quarter: 2010Q2

REPORT INFORMATION
  Report Type: 
  Country: None (occurrence: None)
  Receive Date: 20100528
  Receipt Date: 20100524
  Transmission Date: 20101027
  Serious: Yes (Life-Threatening)
  Sender: FDA-Public Use
  Company Number: PHHY2010US33925

PATIENT
  Sex: Female

DRUGS (2)
  1. RECLAST [Suspect]
     Route: 042
  2. CITRACAL [Suspect]

REACTIONS (1)
  - CHOKING [None]
